FAERS Safety Report 20050881 (Version 1)
Quarter: 2021Q4

REPORT INFORMATION
  Report Type: Report from Study
  Country: JP (occurrence: JP)
  Receive Date: 20211110
  Receipt Date: 20211110
  Transmission Date: 20220303
  Serious: Yes (Other)
  Sender: FDA-Public Use
  Company Number: JP-SUN PHARMACEUTICAL INDUSTRIES LTD-2021R1-315876

PATIENT
  Age: 42 Year
  Sex: Male

DRUGS (4)
  1. TEGRETOL [Suspect]
     Active Substance: CARBAMAZEPINE
     Indication: Epilepsy
     Dosage: 400 MILLIGRAM
     Route: 048
  2. PHENOBARBITAL [Suspect]
     Active Substance: PHENOBARBITAL
     Indication: Epilepsy
     Dosage: 50 MILLIGRAM
     Route: 048
  3. PHENYTOIN [Suspect]
     Active Substance: PHENYTOIN
     Indication: Epilepsy
     Dosage: 150 MILLIGRAM
     Route: 048
  4. CLONAZEPAM [Suspect]
     Active Substance: CLONAZEPAM
     Indication: Epilepsy
     Dosage: 2 MILLIGRAM
     Route: 048

REACTIONS (2)
  - Ileus paralytic [Recovered/Resolved]
  - Gastric fistula [Unknown]
